FAERS Safety Report 16056253 (Version 1)
Quarter: 2019Q1

REPORT INFORMATION
  Report Type: Spontaneous
  Country: ES (occurrence: ES)
  Receive Date: 20190311
  Receipt Date: 20190311
  Transmission Date: 20190418
  Serious: Yes (Life-Threatening)
  Sender: FDA-Public Use
  Company Number: ES-SUN PHARMACEUTICAL INDUSTRIES LTD-2019RR-201352

PATIENT
  Age: 4 Year
  Sex: Female

DRUGS (6)
  1. METAMIZOL (111A) [Suspect]
     Active Substance: METAMIZOL SODIUM
     Indication: PAIN
     Dosage: 400 MILLIGRAM, DAILY
     Route: 048
     Dates: start: 20190105, end: 20190105
  2. VANCOMICINA (3197A) [Suspect]
     Active Substance: VANCOMYCIN
     Indication: EMPYEMA
     Dosage: 300 MILLIGRAM, QID
     Route: 042
     Dates: start: 20181213, end: 20190111
  3. LEVETIRACETAM (1167A) [Concomitant]
     Active Substance: LEVETIRACETAM
     Indication: SEIZURE PROPHYLAXIS
     Dosage: 300 MILLIGRAM, TID
     Route: 048
     Dates: start: 20181120
  4. OMEPRAZOLE. [Suspect]
     Active Substance: OMEPRAZOLE
     Indication: PROPHYLAXIS
     Dosage: 20 MILLIGRAM, DAILY
     Route: 048
     Dates: start: 20181213, end: 20190115
  5. PARACETAMOL (12A) [Concomitant]
     Active Substance: ACETAMINOPHEN
     Indication: PAIN
     Dosage: 300 MILLIGRAM
     Route: 042
     Dates: start: 20190101
  6. BACLOFENO (454A) [Concomitant]
     Indication: PRODUCT USED FOR UNKNOWN INDICATION
     Dosage: 400 MILLIGRAM, DAILY
     Route: 042
     Dates: start: 20181120

REACTIONS (1)
  - Agranulocytosis [Recovered/Resolved]

NARRATIVE: CASE EVENT DATE: 20190111
